FAERS Safety Report 9002219 (Version 1)
Quarter: 2013Q1

REPORT INFORMATION
  Report Type: Spontaneous
  Country: US (occurrence: US)
  Receive Date: 20130107
  Receipt Date: 20130107
  Transmission Date: 20140127
  Serious: Yes (Hospitalization)
  Sender: FDA-Public Use
  Company Number: US-MERCK-1301USA001188

PATIENT
  Age: 8 Year
  Sex: Male

DRUGS (5)
  1. SINGULAIR [Suspect]
     Route: 048
  2. LORATADINE [Suspect]
     Route: 048
  3. HOMEOPATHIC MEDICATIONS [Suspect]
     Route: 048
  4. BECOTIDE NASAL [Suspect]
     Dosage: 1 PUFF BID, UNK
  5. ALBUTEROL SULFATE [Concomitant]

REACTIONS (3)
  - Visual impairment [Unknown]
  - Intracranial pressure increased [Unknown]
  - Eosinophil count [Unknown]
